FAERS Safety Report 10268524 (Version 1)
Quarter: 2014Q2

REPORT INFORMATION
  Report Type: Spontaneous
  Country: MX (occurrence: MX)
  Receive Date: 20140630
  Receipt Date: 20140630
  Transmission Date: 20141212
  Serious: Yes (Other)
  Sender: FDA-Public Use
  Company Number: PHHY2014MX077902

PATIENT
  Age: 60 Year
  Sex: Female

DRUGS (4)
  1. TEGRETOL [Suspect]
     Indication: BIPOLAR DISORDER
     Dosage: 2 DF, DAILY
     Route: 048
  2. TEGRETOL [Suspect]
     Indication: OFF LABEL USE
  3. TEGRETOL [Suspect]
     Indication: BIPOLAR DISORDER
     Dosage: 3 DF, DAILY
  4. TEGRETOL [Suspect]
     Indication: OFF LABEL USE

REACTIONS (6)
  - Bipolar I disorder [Unknown]
  - Depressed mood [Unknown]
  - Feeling abnormal [Unknown]
  - Nervousness [Unknown]
  - Screaming [Unknown]
  - Aggression [Unknown]
